FAERS Safety Report 8344490-0 (Version None)
Quarter: 2012Q2

REPORT INFORMATION
  Report Type: 
  Country: None (occurrence: None)
  Receive Date: 20120508
  Receipt Date: 20120427
  Transmission Date: 20120825
  Serious: Yes (Hospitalization)
  Sender: FDA-Public Use
  Company Number: DE-JNJFOC-20120314353

PATIENT
  Age: 59 Year
  Sex: Female
  Weight: 60 kg

DRUGS (1)
  1. REMICADE [Suspect]
     Indication: ANKYLOSING SPONDYLITIS
     Route: 042
     Dates: start: 20120312, end: 20120326

REACTIONS (5)
  - FATIGUE [None]
  - HEADACHE [None]
  - ASTHENIA [None]
  - ANAPHYLACTIC SHOCK [None]
  - INFUSION RELATED REACTION [None]
